FAERS Safety Report 5862190-3 (Version None)
Quarter: 2008Q3

REPORT INFORMATION
  Report Type: 
  Country: None (occurrence: None)
  Receive Date: 20080828
  Receipt Date: 20080324
  Transmission Date: 20090109
  Serious: No
  Sender: FDA-Public Use
  Company Number: A0716893A

PATIENT
  Age: 29 Year
  Sex: Female

DRUGS (4)
  1. ZOVIRAX [Suspect]
     Dosage: 5G THREE TIMES PER DAY
     Route: 061
     Dates: start: 20080319, end: 20080320
  2. VALTREX [Suspect]
     Dosage: 1G TWICE PER DAY
     Route: 048
     Dates: start: 20080320
  3. VITAMIN TAB [Concomitant]
  4. FOLIC ACID [Concomitant]

REACTIONS (4)
  - APPLICATION SITE SWELLING [None]
  - DRUG EXPOSURE DURING PREGNANCY [None]
  - INFLAMMATION [None]
  - LIP SWELLING [None]
